FAERS Safety Report 4375422-8 (Version None)
Quarter: 2004Q2

REPORT INFORMATION
  Report Type: 
  Country: None (occurrence: None)
  Receive Date: 20040610
  Receipt Date: 20040513
  Transmission Date: 20050107
  Serious: No
  Sender: FDA-Public Use
  Company Number: 200411677JP

PATIENT
  Age: 84 Year
  Sex: Female

DRUGS (2)
  1. KETEK [Suspect]
     Indication: BRONCHOPNEUMONIA
     Route: 048
     Dates: start: 20040506, end: 20040510
  2. CEFMETAZON [Concomitant]
     Indication: BRONCHOPNEUMONIA
     Route: 041
     Dates: start: 20040507, end: 20040511

REACTIONS (8)
  - ANOREXIA [None]
  - COUGH [None]
  - DIARRHOEA [None]
  - EPISTAXIS [None]
  - ERYTHEMA [None]
  - STRIDOR [None]
  - WHITE BLOOD CELL COUNT DECREASED [None]
  - WHITE BLOOD CELL COUNT INCREASED [None]
